FAERS Safety Report 8377802-2 (Version None)
Quarter: 2012Q2

REPORT INFORMATION
  Report Type: 
  Country: None (occurrence: None)
  Receive Date: 20120521
  Receipt Date: 20120512
  Transmission Date: 20120825
  Serious: Yes (Hospitalization, Other)
  Sender: FDA-Public Use
  Company Number: CL-413-2012

PATIENT
  Age: 95 Year
  Sex: Female

DRUGS (1)
  1. CIPROFLOXACIN [Suspect]
     Indication: CYSTITIS
     Dosage: 500MG BD ORAL
     Route: 048

REACTIONS (5)
  - EROSIVE OESOPHAGITIS [None]
  - MELAENA [None]
  - PALLOR [None]
  - OESOPHAGITIS HAEMORRHAGIC [None]
  - HAEMATEMESIS [None]
